FAERS Safety Report 8802231 (Version 1)
Quarter: 2012Q4

REPORT INFORMATION
  Report Type: 
  Country: US (occurrence: US)
  Receive Date: 20120921
  Receipt Date: 20120921
  Transmission Date: 20130627
  Serious: No
  Sender: FDA-Public Use
  Company Number: US-ASTRAZENECA-2012SE70551

PATIENT
  Age: 61 Year
  Sex: Female
  Weight: 81.6 kg

DRUGS (5)
  1. NEXIUM [Suspect]
     Indication: GASTROOESOPHAGEAL REFLUX DISEASE
     Route: 048
     Dates: start: 2001, end: 201208
  2. NEXIUM [Suspect]
     Indication: DIVERTICULITIS
     Route: 048
     Dates: start: 2001, end: 201208
  3. LISINOPRIL HCTZ [Suspect]
     Indication: BLOOD PRESSURE ABNORMAL
     Dosage: 20/12.5MG,DAILY
     Route: 048
     Dates: start: 1991
  4. CYMBALTA [Concomitant]
     Indication: ARTHRALGIA
  5. CYMBALTA [Concomitant]
     Indication: DEPRESSION

REACTIONS (5)
  - Diverticulitis [Unknown]
  - Gastric disorder [Unknown]
  - Eructation [Unknown]
  - Dyspepsia [Unknown]
  - Intentional drug misuse [Unknown]
